FAERS Safety Report 20405518 (Version 1)
Quarter: 2022Q1

REPORT INFORMATION
  Report Type: Spontaneous
  Country: US (occurrence: None)
  Receive Date: 20220129
  Receipt Date: 20220129
  Transmission Date: 20220424
  Serious: Yes (Disabling)
  Sender: FDA-Public Use
  Company Number: None

PATIENT
  Age: 49 Year
  Sex: Female

DRUGS (9)
  1. BUPROPION [Suspect]
     Active Substance: BUPROPION
     Indication: Depression
     Dosage: OTHER QUANTITY : 1 TABLET(S);?FREQUENCY : TWICE A DAY;?
     Route: 048
     Dates: start: 20210501
  2. BUPROPION [Suspect]
     Active Substance: BUPROPION
     Indication: Postpartum stress disorder
  3. BUPROPION [Suspect]
     Active Substance: BUPROPION
     Indication: Appetite disorder
  4. BUPROPION [Suspect]
     Active Substance: BUPROPION
     Indication: Fatigue
  5. WELLBUTRIN XL [Concomitant]
     Active Substance: BUPROPION HYDROCHLORIDE
  6. TIZANIDINE [Concomitant]
     Active Substance: TIZANIDINE
  7. Acetomiophen ER [Concomitant]
  8. VITAMINS [Concomitant]
     Active Substance: VITAMINS
  9. IRON [Concomitant]
     Active Substance: IRON

REACTIONS (15)
  - Gastrointestinal disorder [None]
  - Irritable bowel syndrome [None]
  - Memory impairment [None]
  - Thinking abnormal [None]
  - Fatigue [None]
  - Anger [None]
  - Confusional state [None]
  - Muscle spasms [None]
  - Pain [None]
  - Hallucination [None]
  - Withdrawal syndrome [None]
  - Product substitution issue [None]
  - Product odour abnormal [None]
  - Abdominal discomfort [None]
  - Gastrointestinal pain [None]

NARRATIVE: CASE EVENT DATE: 20210903
